FAERS Safety Report 12284918 (Version 3)
Quarter: 2016Q2

REPORT INFORMATION
  Report Type: Spontaneous
  Country: US (occurrence: US)
  Receive Date: 20160420
  Receipt Date: 20160525
  Transmission Date: 20160815
  Serious: Yes (Hospitalization, Disabling, Other)
  Sender: FDA-Public Use
  Company Number: US-009507513-1604USA012690

PATIENT
  Age: 60 Year
  Sex: Male
  Weight: 88.5 kg

DRUGS (14)
  1. HEPARIN LOCK FLUSH SOLUTION (WYETH) [Concomitant]
     Dosage: 5 ML (50 UNITS) BY INTRACATHETER ROUTE DAILY AS NEEDED
  2. TOPROL XL [Concomitant]
     Active Substance: METOPROLOL SUCCINATE
     Dosage: 50 MG, QPM
     Route: 048
  3. PRILOSEC [Concomitant]
     Active Substance: OMEPRAZOLE MAGNESIUM
     Dosage: 40 MG (1 CAPSULE), DAILY
     Route: 048
  4. KEYTRUDA [Suspect]
     Active Substance: PEMBROLIZUMAB
     Indication: BLADDER CANCER
     Dosage: 2 MG/KG (200 MG), Q3W (CYCLE 1, DAY 1)
     Route: 042
     Dates: start: 20160222, end: 20160222
  5. SODIUM CHLORIDE. [Concomitant]
     Active Substance: SODIUM CHLORIDE
     Dosage: 1L NORMAL SALINE (NS) DAILY (200 ML/HOUR, INTO THE VEIN DAILY, RUN AT 200ML/HR X 5 HOURS DAILY)
     Route: 042
  6. LIDEX [Concomitant]
     Active Substance: FLUOCINONIDE
     Dosage: UNK, AS NEEDED
     Route: 061
  7. ZOCOR [Concomitant]
     Active Substance: SIMVASTATIN
     Dosage: 20 MG, QPM
     Route: 048
  8. LOVENOX [Concomitant]
     Active Substance: ENOXAPARIN SODIUM
     Dosage: 80 MG (1 SYRINGE), Q24H
     Route: 058
  9. LOMOTIL (ATROPINE SULFATE (+) DIPHENOXYLATE HYDROCHLORIDE) [Concomitant]
     Indication: DIARRHOEA
     Dosage: 1 TABLET BU MOUTH 4 TIMES DAILY AS NEEDED
     Route: 048
  10. IMODIUM [Concomitant]
     Active Substance: LOPERAMIDE HYDROCHLORIDE
     Indication: DIARRHOEA
     Dosage: 4 CAPSULES (8MG) BY MOUTH 4 TIMES DAILY AS NEEDED
     Route: 048
  11. KEYTRUDA [Suspect]
     Active Substance: PEMBROLIZUMAB
     Dosage: 2 MG/KG, Q3W, (CYCLE 2 D 1)
     Route: 042
     Dates: start: 20160324, end: 20160324
  12. SODIUM CHLORIDE. [Concomitant]
     Active Substance: SODIUM CHLORIDE
     Dosage: 10 ML BY INTRACATHETHER ROUTE AS NEEDED (FLUSH NEPHROSTOMY TUBE AND DRETTLER STENT WITH 5 ML NS BID)
  13. SODIUM BICARBONATE. [Concomitant]
     Active Substance: SODIUM BICARBONATE
     Dosage: 1300 MG, BID
     Route: 048
  14. FLORINEF ACETATE [Concomitant]
     Active Substance: FLUDROCORTISONE ACETATE
     Dosage: 0.1 MG, QD
     Route: 048

REACTIONS (37)
  - Spinal column stenosis [Unknown]
  - Skin odour abnormal [Unknown]
  - Carbon dioxide increased [Unknown]
  - Red blood cell count decreased [Unknown]
  - Blood alkaline phosphatase increased [Unknown]
  - Drug dose omission [Unknown]
  - Dizziness postural [Unknown]
  - Blood magnesium decreased [Unknown]
  - Haemoglobin decreased [Unknown]
  - Haematocrit decreased [Unknown]
  - Red cell distribution width increased [Unknown]
  - Renal failure [Recovered/Resolved]
  - Hydronephrosis [Unknown]
  - Peripheral swelling [Unknown]
  - Pallor [Unknown]
  - Blood calcium decreased [Unknown]
  - Activated partial thromboplastin time prolonged [Unknown]
  - International normalised ratio increased [Unknown]
  - Hypotension [Unknown]
  - Prothrombin time prolonged [Unknown]
  - Neutrophil count increased [Unknown]
  - Product use issue [Unknown]
  - Blood albumin decreased [Unknown]
  - Decreased appetite [Unknown]
  - Blood potassium decreased [Unknown]
  - Blood chloride decreased [Unknown]
  - Anion gap increased [Unknown]
  - Blood glucose increased [Unknown]
  - Weight decreased [Unknown]
  - Fatigue [Unknown]
  - Dehydration [Unknown]
  - White blood cell count increased [Unknown]
  - Blood bilirubin increased [Unknown]
  - Ascites [Unknown]
  - Dark circles under eyes [Unknown]
  - Mucosal dryness [Unknown]
  - Urine output decreased [Unknown]

NARRATIVE: CASE EVENT DATE: 2016
